FAERS Safety Report 13850449 (Version 2)
Quarter: 2018Q1

REPORT INFORMATION
  Report Type: Spontaneous
  Country: US (occurrence: US)
  Receive Date: 20170809
  Receipt Date: 20180107
  Transmission Date: 20180508
  Serious: No
  Sender: FDA-Public Use
  Company Number: US-ASTRAZENECA-2017SE80809

PATIENT
  Age: 63 Year
  Sex: Female
  Weight: 86 kg

DRUGS (4)
  1. NEXIUM 24HR [Suspect]
     Active Substance: ESOMEPRAZOLE MAGNESIUM
     Indication: GASTROOESOPHAGEAL REFLUX DISEASE
     Route: 048
     Dates: start: 20170803
  2. ALREX [Concomitant]
     Active Substance: LOTEPREDNOL ETABONATE
     Indication: SJOGREN^S SYNDROME
     Dosage: 1 DROP MORNING AND NIGHT
     Route: 047
  3. ESTRADIOL. [Concomitant]
     Active Substance: ESTRADIOL
     Indication: HYSTERECTOMY
     Dosage: 0.025MG UNKNOWN
  4. RESTASIS [Concomitant]
     Active Substance: CYCLOSPORINE
     Indication: SJOGREN^S SYNDROME
     Dosage: 2 DROPS IN BOTH EYES MORNING AND NIGHT
     Route: 047

REACTIONS (3)
  - Contraindicated product administered [Recovered/Resolved]
  - Eye irritation [Recovered/Resolved]
  - Headache [Recovered/Resolved]

NARRATIVE: CASE EVENT DATE: 20170803
